FAERS Safety Report 10980835 (Version 2)
Quarter: 2015Q2

REPORT INFORMATION
  Report Type: Spontaneous
  Country: US (occurrence: US)
  Receive Date: 20150402
  Receipt Date: 20150525
  Transmission Date: 20150821
  Serious: No
  Sender: FDA-Public Use
  Company Number: US-JNJFOC-20141008663

PATIENT
  Age: 22 Year
  Sex: Male
  Weight: 77.11 kg

DRUGS (2)
  1. IMODIUM A-D [Suspect]
     Active Substance: LOPERAMIDE HYDROCHLORIDE
     Route: 048
  2. IMODIUM A-D [Suspect]
     Active Substance: LOPERAMIDE HYDROCHLORIDE
     Indication: ANTIDIARRHOEAL SUPPORTIVE CARE
     Dosage: 6 TEASPOONS, THEN 3 TEASPOONS FOR 2 TOTAL DOSES, 40 MINUTES BETWEEN DOSES
     Route: 048
     Dates: start: 20141003, end: 20141003

REACTIONS (4)
  - Dizziness [Unknown]
  - Chest pain [Not Recovered/Not Resolved]
  - Gastrointestinal pain [Recovered/Resolved]
  - Abdominal pain upper [Recovered/Resolved]

NARRATIVE: CASE EVENT DATE: 20141003
